FAERS Safety Report 14695244 (Version 15)
Quarter: 2020Q3

REPORT INFORMATION
  Report Type: Spontaneous
  Country: US (occurrence: US)
  Receive Date: 20180329
  Receipt Date: 20200819
  Transmission Date: 20201102
  Serious: Yes (Hospitalization)
  Sender: FDA-Public Use
  Company Number: US-ACTELION-A-NJ2018-169798

PATIENT
  Age: 58 Year
  Sex: Female
  Weight: 99.77 kg

DRUGS (18)
  1. UPTRAVI [Suspect]
     Active Substance: SELEXIPAG
     Indication: PULMONARY ARTERIAL HYPERTENSION
     Dosage: 1400 MCG, BID
     Route: 048
  2. UPTRAVI [Suspect]
     Active Substance: SELEXIPAG
     Dosage: 1200 MCG, BID
     Route: 048
     Dates: start: 20160806
  3. AMLODIPINE [Concomitant]
     Active Substance: AMLODIPINE BESYLATE
  4. NORCO [Concomitant]
     Active Substance: ACETAMINOPHEN\HYDROCODONE BITARTRATE
  5. ZAROXOLYN [Concomitant]
     Active Substance: METOLAZONE
  6. UPTRAVI [Suspect]
     Active Substance: SELEXIPAG
     Dosage: UNK
     Route: 048
     Dates: start: 20160806
  7. OPSUMIT [Suspect]
     Active Substance: MACITENTAN
     Indication: PULMONARY ARTERIAL HYPERTENSION
     Dosage: 10 MG, QD
     Route: 048
  8. FLONASE [Concomitant]
     Active Substance: FLUTICASONE PROPIONATE
  9. DIGOXIN. [Concomitant]
     Active Substance: DIGOXIN
  10. NORVASC [Concomitant]
     Active Substance: AMLODIPINE BESYLATE
  11. NEUROTIN (ACETYLCARNITINE HYDROCHLORIDE) [Concomitant]
     Active Substance: LEVACECARNINE HYDROCHLORIDE
  12. ALDACTONE [Concomitant]
     Active Substance: SPIRONOLACTONE
  13. K?DUR [Concomitant]
     Active Substance: POTASSIUM CHLORIDE
  14. ADCIRCA [Concomitant]
     Active Substance: TADALAFIL
  15. NEXIUM [Concomitant]
     Active Substance: ESOMEPRAZOLE MAGNESIUM
  16. LASIX [Concomitant]
     Active Substance: FUROSEMIDE
  17. LETAIRIS [Concomitant]
     Active Substance: AMBRISENTAN
  18. LANOXIN [Concomitant]
     Active Substance: DIGOXIN

REACTIONS (16)
  - Retching [Unknown]
  - Illness [Unknown]
  - Pulmonary arterial hypertension [Recovered/Resolved]
  - Bronchitis [Unknown]
  - Chronic obstructive pulmonary disease [Recovered/Resolved]
  - Amnesia [Unknown]
  - Nausea [Recovering/Resolving]
  - Urinary tract infection [Unknown]
  - Feeling abnormal [Unknown]
  - Dyspnoea [Recovered/Resolved]
  - Pneumonia [Recovered/Resolved]
  - Parotitis [Unknown]
  - Dizziness [Unknown]
  - Swelling face [Unknown]
  - Gastrooesophageal reflux disease [Unknown]
  - Abdominal discomfort [Recovering/Resolving]

NARRATIVE: CASE EVENT DATE: 201803
